FAERS Safety Report 6016437-3 (Version None)
Quarter: 2008Q4

REPORT INFORMATION
  Report Type: 
  Country: None (occurrence: None)
  Receive Date: 20081218
  Receipt Date: 20081208
  Transmission Date: 20090506
  Serious: Yes (Hospitalization, Other)
  Sender: FDA-Public Use
  Company Number: 08IL001120

PATIENT
  Age: 64 Year
  Sex: Female

DRUGS (1)
  1. LITHIUM CARBONATE [Suspect]
     Indication: DEPRESSION

REACTIONS (6)
  - HYPERCALCIURIA [None]
  - HYPERPARATHYROIDISM [None]
  - NEPHROGENIC DIABETES INSIPIDUS [None]
  - OSTEOPOROSIS [None]
  - PARATHYROID TUMOUR BENIGN [None]
  - THYROID CANCER [None]
